FAERS Safety Report 11997351 (Version 1)
Quarter: 2016Q1

REPORT INFORMATION
  Report Type: Report from Study
  Country: US (occurrence: US)
  Receive Date: 20160203
  Receipt Date: 20160203
  Transmission Date: 20160526
  Serious: Yes (Hospitalization, Other)
  Sender: FDA-Public Use
  Company Number: US-GILEAD-2015-0174729

PATIENT
  Age: 90 Year
  Sex: Female

DRUGS (1)
  1. IDELALISIB [Suspect]
     Active Substance: IDELALISIB
     Indication: LYMPHOMA
     Dosage: 150 MG, BID
     Route: 048
     Dates: start: 20150915

REACTIONS (8)
  - Memory impairment [Unknown]
  - Constipation [Not Recovered/Not Resolved]
  - Urosepsis [Unknown]
  - Urinary tract infection [Unknown]
  - Transaminases increased [Unknown]
  - Confusional state [Unknown]
  - Drug dose omission [Unknown]
  - Fatigue [Unknown]
